FAERS Safety Report 13418739 (Version 2)
Quarter: 2017Q2

REPORT INFORMATION
  Report Type: Report from Study
  Country: None (occurrence: GB)
  Receive Date: 20170406
  Receipt Date: 20170513
  Transmission Date: 20170830
  Serious: Yes (Death, Hospitalization, Other)
  Sender: FDA-Public Use
  Company Number: GB-ABBVIE-17K-167-1935527-00

PATIENT
  Age: 65 Year
  Sex: Female
  Weight: 91.25 kg

DRUGS (2)
  1. HUMIRA [Suspect]
     Active Substance: ADALIMUMAB
     Indication: PSORIASIS
     Route: 058
     Dates: start: 20130507
  2. HUMIRA [Suspect]
     Active Substance: ADALIMUMAB
     Indication: PSORIASIS
     Route: 058

REACTIONS (5)
  - Death [Fatal]
  - Spinal compression fracture [Unknown]
  - Hospitalisation [Recovered/Resolved]
  - Lung neoplasm malignant [Unknown]
  - Malignant neoplasm of spinal cord [Unknown]

NARRATIVE: CASE EVENT DATE: 20170402
